FAERS Safety Report 9877025 (Version 2)
Quarter: 2014Q1

REPORT INFORMATION
  Report Type: Spontaneous
  Country: US (occurrence: US)
  Receive Date: 20140206
  Receipt Date: 20140225
  Transmission Date: 20141002
  Serious: No
  Sender: FDA-Public Use
  Company Number: US-JNJFOC-20140114008

PATIENT
  Sex: Male
  Weight: 90.72 kg

DRUGS (13)
  1. DURAGESIC [Suspect]
     Indication: PAIN
     Route: 062
  2. DURAGESIC [Suspect]
     Indication: PAIN
     Route: 062
  3. DURAGESIC [Suspect]
     Indication: PAIN
     Route: 062
  4. DURAGESIC [Suspect]
     Indication: PAIN
     Route: 062
  5. PERCOCET [Concomitant]
     Indication: PAIN
     Route: 065
  6. LYRICA [Concomitant]
     Indication: PAIN
     Route: 065
  7. HYDROCODONE [Concomitant]
     Indication: PAIN
     Route: 065
  8. PRILOSEC [Concomitant]
     Indication: DYSPEPSIA
     Route: 065
  9. DIAZEPAM [Concomitant]
     Indication: MUSCLE SPASMS
     Route: 048
  10. DIAZEPAM [Concomitant]
     Indication: DEPRESSION
     Route: 048
  11. DIAZEPAM [Concomitant]
     Indication: ANXIETY
     Route: 048
  12. CELEXA [Concomitant]
     Indication: DEPRESSION
     Route: 048
  13. NORVASC [Concomitant]
     Indication: HYPERTENSION
     Route: 065

REACTIONS (7)
  - Wrong technique in drug usage process [Recovered/Resolved]
  - Drug ineffective [Recovered/Resolved]
  - Drug dose omission [Unknown]
  - Wrong technique in drug usage process [Recovered/Resolved]
  - Wrong technique in drug usage process [Unknown]
  - Product adhesion issue [Unknown]
  - Pain [Unknown]
